FAERS Safety Report 9168241 (Version 2)
Quarter: 2013Q2

REPORT INFORMATION
  Report Type: Spontaneous
  Country: JP (occurrence: None)
  Receive Date: 20130308
  Receipt Date: 20130402
  Transmission Date: 20140414
  Serious: Yes (Other)
  Sender: FDA-Public Use
  Company Number: TPA2013A01945

PATIENT
  Age: 69 Year
  Sex: Male

DRUGS (9)
  1. FEBURIC [Suspect]
     Indication: HYPERURICAEMIA
     Route: 048
     Dates: start: 20121122, end: 20121220
  2. WARFARIN (WARFARIN) [Concomitant]
     Route: 048
     Dates: start: 20120719
  3. GASTER (FAMOTIDINE) [Concomitant]
  4. RENIVACE (ENALAPRIL MALEATE) [Concomitant]
  5. ADALAT-CR (NIFEDIPINE) [Concomitant]
  6. HALFDIGOXIN (DIGOXIN) [Concomitant]
  7. ARTIST (CARVEDILOL) [Concomitant]
  8. WARFARIN (WARFARIN POTASSIUM) [Concomitant]
  9. LIPOVAS (SIMVASTATIN) [Concomitant]

REACTIONS (5)
  - Haemorrhage urinary tract [None]
  - Epistaxis [None]
  - International normalised ratio increased [None]
  - Drug effect increased [None]
  - Potentiating drug interaction [None]
